FAERS Safety Report 8053070-6 (Version None)
Quarter: 2012Q1

REPORT INFORMATION
  Report Type: 
  Country: None (occurrence: None)
  Receive Date: 20120118
  Receipt Date: 20120117
  Transmission Date: 20120608
  Serious: Yes (Hospitalization)
  Sender: FDA-Public Use
  Company Number: DK-AMGEN-DNKCT2012003004

PATIENT
  Sex: Female

DRUGS (1)
  1. XGEVA [Suspect]
     Indication: OSTEOPOROSIS POSTMENOPAUSAL
     Dosage: 1 ML, Q6MO
     Route: 058
     Dates: start: 20080417

REACTIONS (1)
  - OSTEOARTHRITIS [None]
